FAERS Safety Report 9362962 (Version 1)
Quarter: 2013Q2

REPORT INFORMATION
  Report Type: Spontaneous
  Country: US (occurrence: None)
  Receive Date: 20130619
  Receipt Date: 20130619
  Transmission Date: 20140414
  Serious: Yes (Death)
  Sender: FDA-Public Use
  Company Number: POCR20130197

PATIENT
  Age: 49 Year
  Sex: Male
  Weight: 87.54 kg

DRUGS (5)
  1. OPANA ER [Suspect]
     Indication: PRODUCT USED FOR UNKNOWN INDICATION
     Route: 048
     Dates: start: 201303
  2. DIAZEPAM [Concomitant]
  3. SERTRALINE [Concomitant]
  4. GABAPENTIN [Concomitant]
  5. OLANZAPINE [Concomitant]

REACTIONS (10)
  - Myocardial infarction [None]
  - Toxicity to various agents [None]
  - Overdose [None]
  - Drug abuse [None]
  - Cardiomegaly [None]
  - Dilatation ventricular [None]
  - Arteriosclerosis coronary artery [None]
  - Coronary artery occlusion [None]
  - Pulmonary oedema [None]
  - Brain oedema [None]
